FAERS Safety Report 9130977 (Version 1)
Quarter: 2013Q1

REPORT INFORMATION
  Report Type: Report from Study
  Country: BR (occurrence: BR)
  Receive Date: 20130301
  Receipt Date: 20130301
  Transmission Date: 20140127
  Serious: Yes (Hospitalization)
  Sender: FDA-Public Use
  Company Number: BR-SHIRE-ALL1-2013-01083

PATIENT
  Age: 14 Year
  Sex: Male
  Weight: 25 kg

DRUGS (3)
  1. IDURSULFASE [Suspect]
     Indication: MUCOPOLYSACCHARIDOSIS II
     Dosage: UNK, 1X/WEEK
     Route: 041
     Dates: start: 20040128
  2. CARBAMAZEPIN [Concomitant]
     Indication: NERVOUS SYSTEM DISORDER
     Dosage: 5.0 ML, 2X/DAY:BID
     Route: 048
     Dates: start: 20090805
  3. CAPTOPRIL [Concomitant]
     Indication: CARDIOVASCULAR DISORDER
     Dosage: 12.5 MG, 2X/DAY:BID
     Route: 048
     Dates: start: 200306

REACTIONS (1)
  - Pneumonia [Recovered/Resolved]
